FAERS Safety Report 7353332-1 (Version None)
Quarter: 2011Q1

REPORT INFORMATION
  Report Type: 
  Country: None (occurrence: None)
  Receive Date: 20110315
  Receipt Date: 20110309
  Transmission Date: 20110831
  Serious: Yes (Hospitalization, Disabling, Other)
  Sender: FDA-Public Use
  Company Number: US-MERCK-1004USA02839

PATIENT
  Age: 57 Year
  Sex: Female
  Weight: 83 kg

DRUGS (6)
  1. FOSAMAX [Suspect]
     Route: 048
     Dates: start: 19990101
  2. FOSAMAX [Suspect]
     Route: 048
     Dates: start: 20010101, end: 20060619
  3. COZAAR [Concomitant]
     Route: 065
     Dates: start: 19980210
  4. FOSAMAX PLUS D [Suspect]
     Indication: OSTEOPOROSIS
     Route: 048
  5. PREMARIN [Concomitant]
     Route: 065
     Dates: start: 19980210, end: 20010814
  6. FOSAMAX [Suspect]
     Indication: OSTEOPOROSIS
     Route: 048
     Dates: start: 20000201, end: 20060517

REACTIONS (76)
  - NIGHT SWEATS [None]
  - MOUTH CYST [None]
  - FLUID RETENTION [None]
  - MENISCAL DEGENERATION [None]
  - CERVICOBRACHIAL SYNDROME [None]
  - HYPOPHARYNGEAL CANCER STAGE I [None]
  - ANXIETY [None]
  - CHILLS [None]
  - INTESTINAL POLYP [None]
  - NOCTURIA [None]
  - SPINAL OSTEOARTHRITIS [None]
  - MUSCLE INJURY [None]
  - GOUT [None]
  - GINGIVAL BLEEDING [None]
  - GASTROOESOPHAGEAL REFLUX DISEASE [None]
  - AORTIC STENOSIS [None]
  - EAR PAIN [None]
  - DIVERTICULUM [None]
  - JOINT INJURY [None]
  - HYPERTRIGLYCERIDAEMIA [None]
  - SUBMANDIBULAR MASS [None]
  - ARTHRALGIA [None]
  - SYNOVIAL CYST [None]
  - BREAST DISORDER [None]
  - ARTHROPATHY [None]
  - JAW DISORDER [None]
  - DIARRHOEA [None]
  - VERTIGO [None]
  - TENDONITIS [None]
  - ASTHENIA [None]
  - DYSPHAGIA [None]
  - OSTEONECROSIS OF JAW [None]
  - OSTEOMYELITIS [None]
  - FATIGUE [None]
  - EAR INFECTION [None]
  - HEADACHE [None]
  - NODAL ARRHYTHMIA [None]
  - MENISCUS LESION [None]
  - VERTIGO POSITIONAL [None]
  - WEIGHT DECREASED [None]
  - SOFT TISSUE DISORDER [None]
  - SKIN PAPILLOMA [None]
  - GRAFT INFECTION [None]
  - CONSTIPATION [None]
  - COUGH [None]
  - OEDEMA PERIPHERAL [None]
  - TACHYCARDIA [None]
  - VOMITING [None]
  - FOREIGN BODY [None]
  - FOOT FRACTURE [None]
  - ATRIAL FIBRILLATION [None]
  - BRONCHITIS [None]
  - CORONARY ARTERY DISEASE [None]
  - HYPERLIPIDAEMIA [None]
  - NODULE [None]
  - MENOPAUSAL SYMPTOMS [None]
  - URINARY TRACT INFECTION [None]
  - JOINT EFFUSION [None]
  - FISTULA DISCHARGE [None]
  - CONTUSION [None]
  - CHRONIC OBSTRUCTIVE PULMONARY DISEASE [None]
  - ARTHRITIS [None]
  - ADVERSE DRUG REACTION [None]
  - FALL [None]
  - RADIATION INJURY [None]
  - DYSGEUSIA [None]
  - DEPRESSION [None]
  - HEART RATE IRREGULAR [None]
  - MYOFASCIAL PAIN SYNDROME [None]
  - VIRAL INFECTION [None]
  - FUNGAL INFECTION [None]
  - PERIOSTITIS [None]
  - PAIN [None]
  - ORAL DISCHARGE [None]
  - LACTOSE INTOLERANCE [None]
  - BENIGN NEOPLASM [None]
